FAERS Safety Report 4409906-0 (Version None)
Quarter: 2004Q3

REPORT INFORMATION
  Report Type: 
  Country: None (occurrence: None)
  Receive Date: 20040728
  Receipt Date: 20040128
  Transmission Date: 20050211
  Serious: Yes (Hospitalization)
  Sender: FDA-Public Use
  Company Number: US-GLAXOSMITHKLINE-A0496460A

PATIENT
  Age: 60 Year
  Sex: Female
  Weight: 101.4 kg

DRUGS (21)
  1. AVANDIA [Suspect]
     Dosage: 8MG IN THE MORNING
     Route: 048
     Dates: start: 19990728, end: 20020404
  2. GLUCOPHAGE [Concomitant]
  3. FUROSEMIDE [Concomitant]
  4. ASPIRIN [Concomitant]
  5. POTASSIUM CHLORIDE [Concomitant]
     Dosage: 10MG PER DAY
  6. LESCOL [Concomitant]
  7. ACTOS [Concomitant]
     Dosage: 30MG PER DAY
  8. HYDROCODONE [Concomitant]
     Dates: start: 20000218
  9. ALBUTEROL [Concomitant]
  10. AZMACORT [Concomitant]
     Dates: start: 20000301
  11. LEVAQUIN [Concomitant]
     Dates: start: 20000301
  12. PLENDIL [Concomitant]
     Dosage: 2.5MG PER DAY
     Dates: end: 20001001
  13. LAMISIL [Concomitant]
  14. ETODOLAC [Concomitant]
     Dates: start: 20001001, end: 20001026
  15. ZAROXOLYN [Concomitant]
  16. METFORMIN HCL [Concomitant]
     Dosage: 850MG TWICE PER DAY
     Route: 048
  17. PEPCID [Concomitant]
     Dosage: 20MG PER DAY
  18. ROCEPHIN [Concomitant]
  19. TUMS [Concomitant]
  20. CIPROFLOXACIN [Concomitant]
     Indication: URINARY TRACT INFECTION
     Dates: start: 20020314
  21. ENALAPRIL MALEATE [Concomitant]
     Dosage: 10MG PER DAY
     Route: 048
     Dates: end: 20020404

REACTIONS (9)
  - ANAEMIA [None]
  - ASCITES [None]
  - CARDIAC FAILURE CONGESTIVE [None]
  - DYSPNOEA [None]
  - FATIGUE [None]
  - FLUID RETENTION [None]
  - HEPATIC CIRRHOSIS [None]
  - HEPATIC FAILURE [None]
  - RENAL FAILURE [None]
